FAERS Safety Report 7978415-4 (Version None)
Quarter: 2011Q4

REPORT INFORMATION
  Report Type: 
  Country: None (occurrence: None)
  Receive Date: 20111205
  Receipt Date: 20111124
  Transmission Date: 20120403
  Serious: Yes (Hospitalization)
  Sender: FDA-Public Use
  Company Number: 7097958

PATIENT
  Age: 91 Year
  Sex: Female

DRUGS (5)
  1. ISRADIPINE [Suspect]
     Indication: PRODUCT USED FOR UNKNOWN INDICATION
     Dosage: 1 DF (1 DF, 1 IN 1 D) ORAL
     Route: 048
  2. LEVOTHYROXINE SODIUM [Suspect]
     Indication: PRODUCT USED FOR UNKNOWN INDICATION
     Dosage: 112.5 MCG (112.5 MCG, 1 IN 1 D) ORAL
     Route: 048
  3. LANSOPRAZOLE [Suspect]
     Indication: PRODUCT USED FOR UNKNOWN INDICATION
     Dosage: 1 DF (1 DF, 1 IN 1 D) ORAL
     Route: 048
  4. OLMESARTAN MEDOXOMIL [Suspect]
     Indication: PRODUCT USED FOR UNKNOWN INDICATION
     Dosage: 1 DF (1 DF, 1 IN 1 D) ORAL
     Route: 048
     Dates: start: 20090101
  5. FENTANYL [Suspect]
     Indication: PRODUCT USED FOR UNKNOWN INDICATION
     Dosage: 0.3333 DF (1 DF, 1 IN 3 D) TRANSDERMAL
     Route: 062
     Dates: start: 20111001, end: 20111011

REACTIONS (2)
  - DERMATITIS BULLOUS [None]
  - PRURITUS [None]
